FAERS Safety Report 25930603 (Version 3)
Quarter: 2025Q4

REPORT INFORMATION
  Report Type: Spontaneous
  Country: US (occurrence: US)
  Receive Date: 20251016
  Receipt Date: 20251107
  Transmission Date: 20260118
  Serious: Yes (Disabling, Other)
  Sender: MERCK SHARP & DOHME LLC
  Company Number: US-009507513-2336107

PATIENT
  Age: 55 Year
  Sex: Female
  Weight: 69 kg

DRUGS (4)
  1. WINREVAIR [Suspect]
     Active Substance: SOTATERCEPT-CSRK
     Indication: Pulmonary arterial hypertension
     Route: 058
     Dates: start: 20240529, end: 20250815
  2. WINREVAIR [Suspect]
     Active Substance: SOTATERCEPT-CSRK
  3. WINREVAIR [Suspect]
     Active Substance: SOTATERCEPT-CSRK
  4. WINREVAIR [Suspect]
     Active Substance: SOTATERCEPT-CSRK

REACTIONS (14)
  - Ventilation perfusion mismatch [Not Recovered/Not Resolved]
  - Oxygen consumption increased [Unknown]
  - Right-to-left cardiac shunt [Unknown]
  - Lung disorder [Unknown]
  - Pulmonary arterial hypertension [Unknown]
  - Brachiocephalic vein occlusion [Unknown]
  - Subclavian vein occlusion [Unknown]
  - Right ventricular dysfunction [Unknown]
  - Spinal osteoarthritis [Unknown]
  - Hypoxia [Unknown]
  - Collateral circulation [Unknown]
  - Pulmonary valve incompetence [Unknown]
  - Mitral valve incompetence [Unknown]
  - Tricuspid valve incompetence [Unknown]

NARRATIVE: CASE EVENT DATE: 20241119
